FAERS Safety Report 11011190 (Version 1)
Quarter: 2015Q2

REPORT INFORMATION
  Report Type: Spontaneous
  Country: US (occurrence: US)
  Receive Date: 20150410
  Receipt Date: 20150410
  Transmission Date: 20150821
  Serious: Yes (Other)
  Sender: FDA-Public Use
  Company Number: US-ABBVIE-15P-163-1372689-00

PATIENT
  Age: 42 Year
  Sex: Male

DRUGS (1)
  1. TESTOSTERONE. [Suspect]
     Active Substance: TESTOSTERONE
     Indication: PRODUCT USED FOR UNKNOWN INDICATION
     Dosage: 50 MG/DAY GEL (50 MG,1 D)
     Route: 065

REACTIONS (2)
  - Deep vein thrombosis [Unknown]
  - Spinal cord infarction [Unknown]
